FAERS Safety Report 8261944-6 (Version None)
Quarter: 2012Q2

REPORT INFORMATION
  Report Type: 
  Country: None (occurrence: None)
  Receive Date: 20120405
  Receipt Date: 20120326
  Transmission Date: 20120825
  Serious: Yes (Hospitalization)
  Sender: FDA-Public Use
  Company Number: FR-SANOFI-AVENTIS-2012SA020482

PATIENT
  Age: 28 Year
  Sex: Female

DRUGS (4)
  1. HYDROCORTISONE [Concomitant]
     Dosage: LONG-TERM THERAPY.
     Route: 048
  2. FLUDROCORTISONE ACETATE [Concomitant]
     Dosage: LONG-TERM THERAPY.
     Route: 048
  3. ASPEGIC 1000 [Concomitant]
     Route: 065
     Dates: end: 20120221
  4. LOVENOX [Suspect]
     Route: 058
     Dates: start: 20120121, end: 20120220

REACTIONS (4)
  - CONDITION AGGRAVATED [None]
  - TRANSAMINASES INCREASED [None]
  - MATERNAL EXPOSURE DURING PREGNANCY [None]
  - BLOOD ALKALINE PHOSPHATASE INCREASED [None]
